FAERS Safety Report 9990429 (Version 1)
Quarter: 2014Q1

REPORT INFORMATION
  Report Type: Spontaneous
  Country: DE (occurrence: DE)
  Receive Date: 20140310
  Receipt Date: 20140310
  Transmission Date: 20141002
  Serious: Yes (Other)
  Sender: FDA-Public Use
  Company Number: DE-DRREDDYS-GER/GER/14/0038734

PATIENT
  Age: 35 Year
  Sex: 0
  Weight: 78 kg

DRUGS (2)
  1. LAMOTRIGINE [Suspect]
     Indication: EPILEPSY
     Dosage: 350 MG/D AND DOSAGE INCREASING AT THE END 150-100-150 MG/D
     Route: 048
     Dates: start: 20120307, end: 20121118
  2. FOLSAURE [Concomitant]
     Indication: PROPHYLAXIS OF NEURAL TUBE DEFECT
     Route: 048

REACTIONS (3)
  - Premature rupture of membranes [Unknown]
  - Caesarean section [Unknown]
  - Exposure during pregnancy [Unknown]
